FAERS Safety Report 5237439-0 (Version None)
Quarter: 2007Q1

REPORT INFORMATION
  Report Type: 
  Country: None (occurrence: None)
  Receive Date: 20070213
  Receipt Date: 20070205
  Transmission Date: 20070707
  Serious: Yes (Other)
  Sender: FDA-Public Use
  Company Number: US-PFIZER INC-2007009894

PATIENT
  Sex: Male
  Weight: 90.7 kg

DRUGS (5)
  1. CAVERJECT IMPULSE DUAL CHAMBER SYSTEM POWDER, STERILE [Suspect]
     Indication: ERECTILE DYSFUNCTION
  2. LIPITOR [Concomitant]
  3. CELEBREX [Concomitant]
  4. DIOVAN [Concomitant]
  5. ASPIRIN [Concomitant]

REACTIONS (2)
  - DEVICE FAILURE [None]
  - HIP ARTHROPLASTY [None]
